FAERS Safety Report 6879636-4 (Version None)
Quarter: 2010Q3

REPORT INFORMATION
  Report Type: 
  Country: None (occurrence: None)
  Receive Date: 20100728
  Receipt Date: 20090727
  Transmission Date: 20110219
  Serious: No
  Sender: FDA-Public Use
  Company Number: US-MYLANLABS-2009S1011235

PATIENT
  Age: 12 Year
  Sex: Male

DRUGS (6)
  1. CLONIDINE HYDROCHLORIDE [Suspect]
     Indication: BLOOD PRESSURE INCREASED
     Dosage: 0.2MG
     Route: 048
  2. CLONIDINE HYDROCHLORIDE [Suspect]
     Indication: INSOMNIA
     Dosage: 0.2MG
     Route: 048
  3. CLONIDINE HYDROCHLORIDE [Suspect]
     Dosage: 0.2MG
     Route: 048
  4. CLONIDINE HYDROCHLORIDE [Suspect]
     Dosage: 0.2MG
     Route: 048
  5. ALLEGRA [Concomitant]
     Indication: MULTIPLE ALLERGIES
  6. CONCERTA [Concomitant]
     Indication: ATTENTION DEFICIT/HYPERACTIVITY DISORDER

REACTIONS (2)
  - BLOOD PRESSURE INCREASED [None]
  - DRUG INEFFECTIVE [None]
